FAERS Safety Report 13049938 (Version 2)
Quarter: 2016Q4

REPORT INFORMATION
  Report Type: Spontaneous
  Country: GB (occurrence: GB)
  Receive Date: 20161221
  Receipt Date: 20161229
  Transmission Date: 20170207
  Serious: Yes (Hospitalization, Other)
  Sender: FDA-Public Use
  Company Number: GB-TEVA-720403ACC

PATIENT
  Sex: Female

DRUGS (2)
  1. MYFENAX [Suspect]
     Active Substance: MYCOPHENOLATE MOFETIL
     Route: 065
  2. ADVAGRAF [Suspect]
     Active Substance: TACROLIMUS
     Route: 065

REACTIONS (1)
  - Liver disorder [Unknown]
